FAERS Safety Report 20137966 (Version 1)
Quarter: 2021Q4

REPORT INFORMATION
  Report Type: Spontaneous
  Country: FR (occurrence: FR)
  Receive Date: 20211202
  Receipt Date: 20211202
  Transmission Date: 20220304
  Serious: Yes (Hospitalization, Congenital Anomaly, Other)
  Sender: FDA-Public Use
  Company Number: FR-ABBVIE-21K-056-4182346-00

PATIENT
  Age: 3 Year
  Sex: Female
  Weight: 2.99 kg

DRUGS (1)
  1. VALPROATE SODIUM [Suspect]
     Active Substance: VALPROATE SODIUM
     Indication: Product used for unknown indication
     Route: 064

REACTIONS (8)
  - Multiple congenital abnormalities [Unknown]
  - Foetal exposure during pregnancy [Unknown]
  - Psychomotor skills impaired [Unknown]
  - Cardiac hypertrophy [Unknown]
  - Pericardial effusion [Unknown]
  - Dysmorphism [Unknown]
  - Congenital hand malformation [Unknown]
  - Congenital foot malformation [Unknown]
